FAERS Safety Report 17253852 (Version 1)
Quarter: 2020Q1

REPORT INFORMATION
  Report Type: Spontaneous
  Country: US (occurrence: US)
  Receive Date: 20200109
  Receipt Date: 20200109
  Transmission Date: 20200409
  Serious: Yes (Hospitalization, Other)
  Sender: FDA-Public Use
  Company Number: US-AMNEAL PHARMACEUTICALS-2019-AMRX-02396

PATIENT
  Age: 37 Year
  Sex: Female
  Weight: 81 kg

DRUGS (17)
  1. VITAMIN B12 [Concomitant]
     Active Substance: CYANOCOBALAMIN
     Indication: FATIGUE
     Dosage: 1000 MICROGRAM, 1 /DAY
     Route: 048
     Dates: start: 20170203
  2. HYDROCORTISONE 1% IN ABSORBASE [Concomitant]
     Active Substance: HYDROCORTISONE
     Indication: RASH
     Dosage: 1 PERCENT, AS REQUIRED
     Route: 061
     Dates: start: 20170301
  3. VITAMIN C PLUS [ASCORBIC ACID] [Concomitant]
     Indication: IRON DEFICIENCY
     Dosage: 500 MILLIGRAM, 1 /DAY
     Route: 048
     Dates: start: 20170203
  4. FOLIC ACID. [Concomitant]
     Active Substance: FOLIC ACID
     Indication: GENERAL PHYSICAL CONDITION
     Dosage: 400 MICROGRAM, 1 /DAY
     Route: 048
     Dates: start: 2015
  5. CETIRIZINE HCL [Concomitant]
     Active Substance: CETIRIZINE HYDROCHLORIDE
     Indication: SEASONAL ALLERGY
     Dosage: 10 MILLIGRAM, 1 /DAY
     Route: 048
     Dates: start: 201603
  6. FERROUS GLUCONATE [Concomitant]
     Active Substance: FERROUS GLUCONATE
     Indication: ANAEMIA
     Dosage: 240 MILLIGRAM, 3 /DAY
     Route: 048
     Dates: start: 20161103
  7. ELAGOLIX [Suspect]
     Active Substance: ELAGOLIX
     Indication: UTERINE LEIOMYOMA
     Dosage: 2 TABLETS, QD
     Route: 048
     Dates: start: 20170525, end: 20171110
  8. DOCUSATE [Concomitant]
     Active Substance: DOCUSATE
     Indication: CONSTIPATION PROPHYLAXIS
     Dosage: 10 MILLIGRAM, AS REQUIRED
     Route: 048
     Dates: start: 20161103
  9. ACTIVELLA [Suspect]
     Active Substance: ESTRADIOL\NORETHINDRONE ACETATE
     Indication: UTERINE LEIOMYOMA
     Dosage: 1 TABLETS, QD
     Route: 048
     Dates: start: 20170525, end: 20171110
  10. FLUOXETINE [Concomitant]
     Active Substance: FLUOXETINE HYDROCHLORIDE
     Indication: MOOD SWINGS
     Dosage: 20 MILLIGRAM, 1 /DAY
     Route: 048
     Dates: start: 20170315
  11. MULTIVITAMINS [VITAMINS NOS] [Concomitant]
     Active Substance: VITAMINS
     Indication: GENERAL PHYSICAL CONDITION
     Dosage: 1 DOSAGE FORM, 1 /DAY
     Route: 048
     Dates: start: 20160823
  12. MELATONIN [Concomitant]
     Active Substance: MELATONIN
     Indication: INSOMNIA
     Dosage: 5 MILLIGRAM, 1 /DAY
     Route: 048
     Dates: start: 20170529, end: 20170604
  13. CLOBETASOL 0.05% [Concomitant]
     Active Substance: CLOBETASOL
     Indication: DRY SKIN
     Dosage: 0.05 PERCENT, 2 /DAY
     Route: 061
     Dates: start: 20171023
  14. MELATONIN [Concomitant]
     Active Substance: MELATONIN
     Dosage: 10 MILLIGRAM, 1 /DAY
     Route: 048
     Dates: start: 20170605
  15. PERCOCET [Concomitant]
     Active Substance: ACETAMINOPHEN\OXYCODONE HYDROCHLORIDE
     Indication: HYSTERECTOMY
     Dosage: 5/325MG Q4H PRN PAIN
     Route: 048
     Dates: start: 20180624
  16. BIOTIN [Concomitant]
     Active Substance: BIOTIN
     Indication: GENERAL PHYSICAL CONDITION
     Dosage: 1000 MICROGRAM, 2 /DAY
     Route: 048
     Dates: start: 20161230
  17. MAGNESIUM [Concomitant]
     Active Substance: MAGNESIUM
     Indication: GENERAL PHYSICAL CONDITION
     Dosage: 200 MILLIGRAM, 1 /DAY
     Route: 048
     Dates: start: 20161113

REACTIONS (1)
  - Menorrhagia [Recovered/Resolved]

NARRATIVE: CASE EVENT DATE: 20180621
